FAERS Safety Report 16653842 (Version 1)
Quarter: 2019Q3

REPORT INFORMATION
  Report Type: Spontaneous
  Country: CZ (occurrence: CZ)
  Receive Date: 20190731
  Receipt Date: 20190731
  Transmission Date: 20191004
  Serious: Yes (Other)
  Sender: FDA-Public Use
  Company Number: CZ-JNJFOC-20190729463

PATIENT
  Age: 78 Year
  Sex: Female

DRUGS (1)
  1. CAELYX [Suspect]
     Active Substance: DOXORUBICIN HYDROCHLORIDE
     Indication: HODGKIN^S DISEASE
     Dosage: UNK (6 CYCLES)
     Route: 065

REACTIONS (3)
  - Off label use [Unknown]
  - Metastases to lung [Not Recovered/Not Resolved]
  - Product use in unapproved indication [Unknown]
